FAERS Safety Report 13752425 (Version 2)
Quarter: 2017Q4

REPORT INFORMATION
  Report Type: Spontaneous
  Country: US (occurrence: US)
  Receive Date: 20170713
  Receipt Date: 20171123
  Transmission Date: 20180320
  Serious: No
  Sender: FDA-Public Use
  Company Number: US-JAZZ-2017-US-006127

PATIENT
  Age: 64 Year
  Sex: Female

DRUGS (29)
  1. DEMEROL [Concomitant]
     Active Substance: MEPERIDINE HYDROCHLORIDE
  2. METHYLPHENIDATE. [Concomitant]
     Active Substance: METHYLPHENIDATE
  3. MYRBETRIQ [Concomitant]
     Active Substance: MIRABEGRON
  4. HYDROXYZINE [Concomitant]
     Active Substance: HYDROXYZINE HYDROCHLORIDE
  5. ZYRTEC [Concomitant]
     Active Substance: CETIRIZINE HYDROCHLORIDE
  6. FAMOTIDINE. [Concomitant]
     Active Substance: FAMOTIDINE
  7. TRIAMTERENE AND HYDROCHLOROTHIAZIDE [Concomitant]
     Active Substance: HYDROCHLOROTHIAZIDE\TRIAMTERENE
  8. CALCIUM ANTACID [Concomitant]
     Active Substance: CALCIUM CARBONATE
  9. RESTASIS [Concomitant]
     Active Substance: CYCLOSPORINE
  10. XYREM [Suspect]
     Active Substance: SODIUM OXYBATE
     Indication: NARCOLEPSY
     Dosage: 2.25G, BID
     Route: 048
     Dates: start: 201404, end: 201405
  11. LEVICIN                            /00878602/ [Concomitant]
  12. SYNTHROID [Concomitant]
     Active Substance: LEVOTHYROXINE SODIUM
  13. PREMARIN [Concomitant]
     Active Substance: ESTROGENS, CONJUGATED
  14. ASTEPRO [Concomitant]
     Active Substance: AZELASTINE HYDROCHLORIDE
  15. XYREM [Suspect]
     Active Substance: SODIUM OXYBATE
     Dosage: 3.75G, BID
     Route: 048
     Dates: start: 2014
  16. XYREM [Suspect]
     Active Substance: SODIUM OXYBATE
     Dosage: 4.5 G, BID
     Route: 048
  17. POTASSIUM CHLORIDE. [Concomitant]
     Active Substance: POTASSIUM CHLORIDE
  18. ZAROXOLYN [Concomitant]
     Active Substance: METOLAZONE
  19. XYREM [Suspect]
     Active Substance: SODIUM OXYBATE
     Indication: CATAPLEXY
     Dosage: DOSE ADJUSTEMENT
     Route: 048
     Dates: start: 201405, end: 2014
  20. FML FORTE [Concomitant]
     Active Substance: FLUOROMETHOLONE
  21. HYOSCYAMINE. [Concomitant]
     Active Substance: HYOSCYAMINE
  22. CHLORHEXIDINE GLUCONATE. [Concomitant]
     Active Substance: CHLORHEXIDINE GLUCONATE
  23. SUPRAX                             /00497602/ [Concomitant]
     Active Substance: CEFOTAXIME SODIUM
  24. PATANOL [Concomitant]
     Active Substance: OLOPATADINE HYDROCHLORIDE
  25. PREDNISONE. [Suspect]
     Active Substance: PREDNISONE
     Indication: EXPOSURE TO TOXIC AGENT
  26. PHENERGAN [Concomitant]
     Active Substance: PROMETHAZINE HYDROCHLORIDE
  27. METOLAZONE. [Concomitant]
     Active Substance: METOLAZONE
  28. BIONECT [Concomitant]
     Active Substance: HYALURONIC ACID
  29. PRISTIQ EXTENDED-RELEASE [Concomitant]
     Active Substance: DESVENLAFAXINE SUCCINATE

REACTIONS (2)
  - Drug hypersensitivity [Recovered/Resolved]
  - Exposure to toxic agent [Recovered/Resolved]

NARRATIVE: CASE EVENT DATE: 201704
